FAERS Safety Report 7528262-2 (Version None)
Quarter: 2011Q2

REPORT INFORMATION
  Report Type: 
  Country: None (occurrence: None)
  Receive Date: 20110607
  Receipt Date: 20100921
  Transmission Date: 20111010
  Serious: No
  Sender: FDA-Public Use
  Company Number: US-ASTRAZENECA-2010SE44361

PATIENT
  Sex: Female

DRUGS (3)
  1. PRILOSEC [Suspect]
     Indication: GASTROOESOPHAGEAL REFLUX DISEASE
     Route: 048
  2. FIBERCON [Concomitant]
  3. LACTULOSE [Concomitant]

REACTIONS (2)
  - EROSIVE OESOPHAGITIS [None]
  - CONSTIPATION [None]
